FAERS Safety Report 7093290-0 (Version None)
Quarter: 2010Q4

REPORT INFORMATION
  Report Type: 
  Country: None (occurrence: None)
  Receive Date: 20101110
  Receipt Date: 20101102
  Transmission Date: 20110411
  Serious: Yes (Other)
  Sender: FDA-Public Use
  Company Number: US-PFIZER INC-2010139652

PATIENT
  Sex: Male
  Weight: 90.703 kg

DRUGS (7)
  1. LIPITOR [Suspect]
     Indication: BLOOD CHOLESTEROL INCREASED
     Dosage: 40 MG, DAILY
     Route: 048
  2. ACCUPRIL [Suspect]
     Dosage: UNK
  3. TOPROL-XL [Concomitant]
     Dosage: UNK
  4. INDOMETHACIN [Concomitant]
     Dosage: UNK
  5. CLARITIN [Concomitant]
     Dosage: UNK
  6. CIPRO [Concomitant]
     Dosage: UNK
  7. ASPIRIN [Concomitant]
     Dosage: UNK

REACTIONS (3)
  - BLOOD URINE PRESENT [None]
  - HAEMORRHAGE [None]
  - RHINORRHOEA [None]
